FAERS Safety Report 8760244 (Version 1)
Quarter: 2012Q4

REPORT INFORMATION
  Report Type: Spontaneous
  Country: US (occurrence: None)
  Receive Date: 20120828
  Receipt Date: 20120828
  Transmission Date: 20130627
  Serious: Yes (Other)
  Sender: FDA-Public Use
  Company Number: None

PATIENT
  Age: 72 Year
  Sex: Male
  Weight: 99.79 kg

DRUGS (2)
  1. FERAGENE [Suspect]
     Indication: IRON DEFICIENCY ANEMIA
     Route: 042
     Dates: start: 20120711
  2. FERAGENE [Suspect]
     Indication: IRON DEFICIENCY ANEMIA
     Dates: start: 20120718

REACTIONS (6)
  - Erythema [None]
  - Pruritus [None]
  - Oedema peripheral [None]
  - Blister [None]
  - Wound secretion [None]
  - Drug ineffective [None]
